FAERS Safety Report 8418594-8 (Version None)
Quarter: 2012Q2

REPORT INFORMATION
  Report Type: 
  Country: None (occurrence: None)
  Receive Date: 20120607
  Receipt Date: 20120525
  Transmission Date: 20120825
  Serious: Yes (Other)
  Sender: FDA-Public Use
  Company Number: US-JNJFOC-20120602004

PATIENT
  Age: 35 Year
  Sex: Female

DRUGS (18)
  1. PROPOXYPHENE HCL [Suspect]
     Indication: PRODUCT USED FOR UNKNOWN INDICATION
     Route: 065
  2. ZANAFLEX [Suspect]
     Indication: NECK PAIN
     Route: 065
  3. NORDIAZEPAM [Suspect]
     Indication: PRODUCT USED FOR UNKNOWN INDICATION
     Route: 065
  4. ZANAFLEX [Suspect]
     Route: 065
  5. VALIUM [Suspect]
     Route: 065
  6. TRAMADOL HCL [Suspect]
     Indication: NECK PAIN
     Route: 065
  7. TRAMADOL HCL [Suspect]
     Route: 065
  8. ALCOHOL [Suspect]
     Indication: PRODUCT USED FOR UNKNOWN INDICATION
     Route: 065
  9. TRAMADOL HCL [Suspect]
     Indication: BACK PAIN
     Route: 065
  10. ZANAFLEX [Suspect]
     Route: 065
  11. TRAMADOL HCL [Suspect]
     Route: 065
  12. ZANAFLEX [Suspect]
     Indication: BACK PAIN
     Route: 065
  13. VALIUM [Suspect]
     Indication: BACK PAIN
     Route: 065
  14. VALIUM [Suspect]
     Route: 065
  15. CLONAZEPAM [Suspect]
     Indication: PRODUCT USED FOR UNKNOWN INDICATION
     Route: 065
  16. VALIUM [Suspect]
     Indication: NECK PAIN
     Route: 065
  17. METHAMPHETAMINE HYDROCHLORIDE [Suspect]
     Indication: PRODUCT USED FOR UNKNOWN INDICATION
     Route: 065
  18. ALPRAZOLAM [Suspect]
     Indication: PRODUCT USED FOR UNKNOWN INDICATION
     Route: 065

REACTIONS (3)
  - ACCIDENTAL EXPOSURE [None]
  - DRUG SCREEN POSITIVE [None]
  - VICTIM OF CRIME [None]
